FAERS Safety Report 25748425 (Version 6)
Quarter: 2025Q4

REPORT INFORMATION
  Report Type: Spontaneous
  Country: US (occurrence: US)
  Receive Date: 20250902
  Receipt Date: 20251231
  Transmission Date: 20260117
  Serious: Yes (Hospitalization, Other)
  Sender: ALEXION PHARMACEUTICALS
  Company Number: US-AstraZeneca-CH-00939512A

PATIENT
  Sex: Female

DRUGS (3)
  1. ULTOMIRIS [Suspect]
     Active Substance: RAVULIZUMAB-CWVZ
     Indication: Neuromyelitis optica spectrum disorder
     Dosage: UNK
     Route: 065
  2. ULTOMIRIS [Suspect]
     Active Substance: RAVULIZUMAB-CWVZ
     Dosage: UNK
     Route: 065
  3. SOLIRIS [Suspect]
     Active Substance: ECULIZUMAB
     Dosage: UNK
     Route: 065

REACTIONS (10)
  - Encephalopathy [Unknown]
  - Pseudomonal bacteraemia [Recovered/Resolved]
  - Meningitis [Unknown]
  - Systemic candida [Unknown]
  - Delirium [Not Recovered/Not Resolved]
  - Hypophagia [Unknown]
  - Lethargy [Unknown]
  - Abdominal pain [Unknown]
  - Central nervous system lesion [Unknown]
  - CNS ventriculitis [Unknown]
